FAERS Safety Report 8756959 (Version 2)
Quarter: 2012Q4

REPORT INFORMATION
  Report Type: 
  Country: US (occurrence: US)
  Receive Date: 20120828
  Receipt Date: 20120919
  Transmission Date: 20130627
  Serious: Yes (Hospitalization)
  Sender: FDA-Public Use
  Company Number: US-SANOFI-AVENTIS-2012SA059389

PATIENT
  Age: 65 Year
  Sex: Male
  Weight: 90.71 kg

DRUGS (4)
  1. AMBIEN [Suspect]
     Dosage: 1 tablet, per-oral, at bedtime, as and when required.
     Route: 048
     Dates: start: 20120717, end: 20120816
  2. XANAX [Concomitant]
     Indication: DEPRESSION
     Route: 048
     Dates: start: 20120717
  3. NEXIUM /UNK/ [Concomitant]
     Indication: GASTRIC DISORDER
     Route: 048
  4. ALBUTEROL [Concomitant]
     Dosage: 90mcg/1 actuation: 2 puffs Q4H-Q2H PRN
     Route: 048

REACTIONS (5)
  - Somnambulism [Recovering/Resolving]
  - Road traffic accident [Recovering/Resolving]
  - Rib fracture [Recovering/Resolving]
  - Flail chest [Recovering/Resolving]
  - Back pain [Recovering/Resolving]
